FAERS Safety Report 12334621 (Version 1)
Quarter: 2016Q2

REPORT INFORMATION
  Report Type: Report from Study
  Country: US (occurrence: US)
  Receive Date: 20160504
  Receipt Date: 20160504
  Transmission Date: 20160815
  Serious: Yes (Hospitalization)
  Sender: FDA-Public Use
  Company Number: US-CELGENEUS-USA-2016047420

PATIENT
  Age: 88 Year
  Sex: Female
  Weight: 63.1 kg

DRUGS (7)
  1. POMALYST [Suspect]
     Active Substance: POMALIDOMIDE
     Route: 048
     Dates: start: 20151209, end: 20160204
  2. POMALYST [Suspect]
     Active Substance: POMALIDOMIDE
     Indication: PLASMA CELL MYELOMA
     Route: 048
     Dates: start: 20150130, end: 20150313
  3. IXAZOMIB [Suspect]
     Active Substance: IXAZOMIB
     Indication: PLASMA CELL MYELOMA
     Route: 048
     Dates: start: 20160212, end: 20160318
  4. POMALYST [Suspect]
     Active Substance: POMALIDOMIDE
     Dosage: 4 MILLIGRAM
     Route: 048
     Dates: start: 20150316, end: 20150320
  5. POMALYST [Suspect]
     Active Substance: POMALIDOMIDE
     Route: 048
     Dates: start: 20150623, end: 20150916
  6. POMALYST [Suspect]
     Active Substance: POMALIDOMIDE
     Route: 048
     Dates: start: 20150403, end: 20150430
  7. POMALYST [Suspect]
     Active Substance: POMALIDOMIDE
     Route: 048
     Dates: start: 20150518, end: 20150614

REACTIONS (2)
  - Fall [Recovered/Resolved]
  - Asthenia [Recovered/Resolved]

NARRATIVE: CASE EVENT DATE: 20160325
